FAERS Safety Report 4963396-8 (Version None)
Quarter: 2006Q2

REPORT INFORMATION
  Report Type: 
  Country: None (occurrence: None)
  Receive Date: 20060404
  Receipt Date: 20060404
  Transmission Date: 20061013
  Serious: Yes (Hospitalization)
  Sender: FDA-Public Use
  Company Number: None

PATIENT
  Age: 86 Year
  Sex: Male
  Weight: 95.709 kg

DRUGS (4)
  1. FUROSEMIDE [Suspect]
     Dosage: 20 MG PO QD
     Route: 048
  2. LISINOPRIL [Suspect]
     Dosage: 10 MG PO QD
     Route: 048
  3. ISOSORBIDE DINITRATE [Suspect]
  4. NITROGLYCERIN [Suspect]

REACTIONS (6)
  - ASTHENIA [None]
  - BLOOD PRESSURE DIASTOLIC DECREASED [None]
  - BLOOD UREA INCREASED [None]
  - DEHYDRATION [None]
  - FATIGUE [None]
  - ORAL INTAKE REDUCED [None]
